FAERS Safety Report 23150090 (Version 1)
Quarter: 2023Q4

REPORT INFORMATION
  Report Type: Report from Study
  Country: IT (occurrence: IT)
  Receive Date: 20231106
  Receipt Date: 20231106
  Transmission Date: 20240109
  Serious: Yes (Other)
  Sender: FDA-Public Use
  Company Number: None

PATIENT
  Age: 2 Year
  Sex: Female
  Weight: 11 kg

DRUGS (3)
  1. VINCRISTINE [Suspect]
     Active Substance: VINCRISTINE
     Indication: Aesthesioneuroblastoma
     Dosage: 0.75 MG/DAY ON 02,23/08,013/09,05/10/23
     Dates: start: 20230802, end: 20231005
  2. COSMEGEN [Suspect]
     Active Substance: DACTINOMYCIN
     Indication: Aesthesioneuroblastoma
     Dosage: 0.75 MG/DAY ON 02, 23/08, 13/09, 05/10/2023
     Dates: start: 20230802, end: 20231005
  3. IFOSFAMIDE [Suspect]
     Active Substance: IFOSFAMIDE
     Indication: Aesthesioneuroblastoma
     Dosage: 1500 MG/DAY ON 02, 03, 24/08/2023, 13,14/09/2023, 05,06/10/2023
     Dates: start: 20230802, end: 20231006

REACTIONS (2)
  - Pancytopenia [Recovering/Resolving]
  - Anaemia [Recovering/Resolving]

NARRATIVE: CASE EVENT DATE: 20230811
